FAERS Safety Report 4426226-9 (Version None)
Quarter: 2004Q3

REPORT INFORMATION
  Report Type: 
  Country: None (occurrence: None)
  Receive Date: 20040811
  Receipt Date: 20040804
  Transmission Date: 20050211
  Serious: Yes (Life-Threatening)
  Sender: FDA-Public Use
  Company Number: 2004SE04319

PATIENT
  Age: 55 Year
  Sex: Female

DRUGS (7)
  1. SEROQUEL [Suspect]
     Indication: SCHIZOPHRENIA
     Dates: start: 20040525, end: 20040530
  2. SEROQUEL [Suspect]
     Indication: SCHIZOPHRENIA
     Dosage: 300 MG BID  PO
     Route: 048
     Dates: start: 20040531, end: 20040622
  3. SEROQUEL [Suspect]
     Indication: SCHIZOPHRENIA
     Dosage: 1000 MG DAILY PO
     Route: 048
     Dates: start: 20040623, end: 20040712
  4. NOZINAN [Concomitant]
  5. PHENERGAN HCL [Concomitant]
  6. IMOVANE [Concomitant]
  7. AKINETON [Concomitant]

REACTIONS (6)
  - AGRANULOCYTOSIS [None]
  - C-REACTIVE PROTEIN INCREASED [None]
  - COUGH [None]
  - FEELING ABNORMAL [None]
  - PYREXIA [None]
  - SEPSIS [None]
